FAERS Safety Report 9788814 (Version 1)
Quarter: 2013Q4

REPORT INFORMATION
  Report Type: Spontaneous
  Country: US (occurrence: US)
  Receive Date: 20131230
  Receipt Date: 20131230
  Transmission Date: 20140711
  Serious: Yes (Other)
  Sender: FDA-Public Use
  Company Number: US-GLAXOSMITHKLINE-A0938858A

PATIENT
  Age: 49 Year
  Sex: Male
  Weight: 188.2 kg

DRUGS (1)
  1. AVANDIA [Suspect]
     Indication: DIABETES MELLITUS
     Dosage: 8MG PER DAY
     Route: 048
     Dates: start: 20050919, end: 20070907

REACTIONS (3)
  - Coronary artery disease [Unknown]
  - Angina pectoris [Unknown]
  - Arteriosclerosis [Unknown]
